APPROVED DRUG PRODUCT: KAITLIB FE
Active Ingredient: ETHINYL ESTRADIOL; NORETHINDRONE
Strength: 0.025MG;0.8MG
Dosage Form/Route: TABLET, CHEWABLE;ORAL
Application: A203448 | Product #001 | TE Code: AB
Applicant: LUPIN LTD
Approved: Dec 17, 2015 | RLD: No | RS: Yes | Type: RX